FAERS Safety Report 8506019-3 (Version None)
Quarter: 2012Q3

REPORT INFORMATION
  Report Type: 
  Country: None (occurrence: None)
  Receive Date: 20120712
  Receipt Date: 20120703
  Transmission Date: 20120928
  Serious: Yes (Hospitalization)
  Sender: FDA-Public Use
  Company Number: BG-ASTRAZENECA-2012SE45848

PATIENT
  Age: 76 Year
  Sex: Female

DRUGS (2)
  1. SINTROM [Concomitant]
     Indication: ATRIAL FIBRILLATION
     Route: 048
  2. ATACAND [Suspect]
     Indication: HYPERTENSION
     Route: 048
     Dates: start: 20120602, end: 20120602

REACTIONS (5)
  - DRUG HYPERSENSITIVITY [None]
  - PRURITUS [None]
  - DERMATITIS BULLOUS [None]
  - ORAL MUCOSAL ERUPTION [None]
  - RASH [None]
